FAERS Safety Report 13914103 (Version 1)
Quarter: 2017Q3

REPORT INFORMATION
  Report Type: Spontaneous
  Country: US (occurrence: US)
  Receive Date: 20170828
  Receipt Date: 20170828
  Transmission Date: 20171127
  Serious: No
  Sender: FDA-Public Use
  Company Number: US-ROCHE-1131800

PATIENT
  Sex: Female
  Weight: 35.4 kg

DRUGS (6)
  1. NUTROPIN [Suspect]
     Active Substance: SOMATROPIN
     Indication: END STAGE RENAL DISEASE
  2. RENAGEL [Concomitant]
     Active Substance: SEVELAMER HYDROCHLORIDE
     Dosage: 2 CAPSUEL EACH MEAL
     Route: 065
  3. EPOGEN [Concomitant]
     Active Substance: ERYTHROPOIETIN
     Route: 065
  4. CALCITRIOL. [Concomitant]
     Active Substance: CALCITRIOL
     Route: 065
  5. COLACE [Concomitant]
     Active Substance: DOCUSATE SODIUM
     Route: 065
  6. CLONIDINE. [Concomitant]
     Active Substance: CLONIDINE
     Route: 065

REACTIONS (1)
  - Antineutrophil cytoplasmic antibody increased [Unknown]
